FAERS Safety Report 5983739-6 (Version None)
Quarter: 2008Q4

REPORT INFORMATION
  Report Type: 
  Country: None (occurrence: None)
  Receive Date: 20081208
  Receipt Date: 20071119
  Transmission Date: 20090506
  Serious: Yes (Other)
  Sender: FDA-Public Use
  Company Number: US-AMGEN-STX249523

PATIENT
  Sex: Male
  Weight: 80.8 kg

DRUGS (4)
  1. ENBREL [Suspect]
     Indication: PSORIASIS
     Route: 058
     Dates: start: 20050120
  2. SIMVASTATIN [Concomitant]
  3. NEXIUM [Concomitant]
  4. COZAAR [Concomitant]

REACTIONS (3)
  - NAIL PITTING [None]
  - PROSTATE CANCER [None]
  - PSORIASIS [None]
